FAERS Safety Report 6077993-2 (Version None)
Quarter: 2009Q1

REPORT INFORMATION
  Report Type: 
  Country: None (occurrence: None)
  Receive Date: 20090213
  Receipt Date: 20090206
  Transmission Date: 20090719
  Serious: Yes (Hospitalization)
  Sender: FDA-Public Use
  Company Number: US-ELI_LILLY_AND_COMPANY-US200902001661

PATIENT
  Sex: Female

DRUGS (3)
  1. HUMALOG [Suspect]
     Indication: TYPE 2 DIABETES MELLITUS
     Dosage: UNK, UNK
     Dates: start: 20060601
  2. HUMALOG [Suspect]
  3. LANTUS [Concomitant]

REACTIONS (9)
  - ANKLE FRACTURE [None]
  - BLOOD GLUCOSE INCREASED [None]
  - EXPIRED DRUG ADMINISTERED [None]
  - FALL [None]
  - HOSPITALISATION [None]
  - INCISION SITE ABSCESS [None]
  - MENTAL IMPAIRMENT [None]
  - POSTOPERATIVE WOUND INFECTION [None]
  - WOUND ABSCESS [None]
